FAERS Safety Report 7943684-3 (Version None)
Quarter: 2011Q4

REPORT INFORMATION
  Report Type: 
  Country: None (occurrence: None)
  Receive Date: 20111128
  Receipt Date: 20111121
  Transmission Date: 20120403
  Serious: Yes (Disabling)
  Sender: FDA-Public Use
  Company Number: GB-BAYER-2011-112961

PATIENT
  Age: 22 Year
  Sex: Female

DRUGS (1)
  1. QLAIRA FILM-COATED TABLETS [Suspect]
     Indication: DYSMENORRHOEA
     Dosage: UNK
     Route: 048
     Dates: start: 20111016, end: 20111023

REACTIONS (5)
  - PAIN [None]
  - VOMITING [None]
  - OEDEMA GENITAL [None]
  - PRESYNCOPE [None]
  - VULVOVAGINAL SWELLING [None]
